FAERS Safety Report 7238313 (Version 3)
Quarter: 2014Q1

REPORT INFORMATION
  Report Type: Spontaneous
  Country: US (occurrence: US)
  Receive Date: 20100106
  Receipt Date: 20140121
  Transmission Date: 20141002
  Serious: Yes (Hospitalization, Other)
  Sender: FDA-Public Use
  Company Number: US-JNJFOC-20100100015

PATIENT
  Sex: Female
  Weight: 72.58 kg

DRUGS (5)
  1. DURAGESIC [Suspect]
     Indication: PAIN
     Route: 062
     Dates: start: 2004, end: 200911
  2. DURAGESIC [Suspect]
     Indication: RADICULOPATHY
     Dosage: 100+100 UG/HR (NDC NUMBER # 50458-094-05) 50 UG/HR (NDC NUMBER # 50458-092-05)
     Route: 062
     Dates: start: 200910
  3. DURAGESIC [Suspect]
     Indication: PAIN
     Dosage: 100+100 UG/HR (NDC NUMBER # 50458-094-05) 50 UG/HR (NDC NUMBER # 50458-092-05)
     Route: 062
     Dates: start: 200910
  4. ADVIL [Concomitant]
     Indication: DYSMENORRHOEA
     Route: 048
  5. MOTRIN [Concomitant]
     Indication: DYSMENORRHOEA
     Route: 048

REACTIONS (8)
  - Spinal fusion surgery [Unknown]
  - Breakthrough pain [Not Recovered/Not Resolved]
  - Pain in extremity [Not Recovered/Not Resolved]
  - Drug dose omission [Recovered/Resolved]
  - Drug effect decreased [Not Recovered/Not Resolved]
  - Therapeutic response decreased [Not Recovered/Not Resolved]
  - Nausea [Not Recovered/Not Resolved]
  - Product quality issue [Unknown]
